FAERS Safety Report 4966272-X (Version None)
Quarter: 2006Q2

REPORT INFORMATION
  Report Type: 
  Country: None (occurrence: None)
  Receive Date: 20060407
  Receipt Date: 20051117
  Transmission Date: 20061013
  Serious: Yes (Hospitalization, Other)
  Sender: FDA-Public Use
  Company Number: US-MERCK-0511USA03130

PATIENT
  Age: 63 Year
  Sex: Male
  Weight: 88 kg

DRUGS (8)
  1. VIOXX [Suspect]
     Indication: OSTEOARTHRITIS
     Route: 048
     Dates: start: 20001201, end: 20020913
  2. VIOXX [Suspect]
     Route: 048
     Dates: start: 20001201, end: 20020913
  3. ZYRTEC [Concomitant]
     Route: 065
  4. FLONASE [Concomitant]
     Route: 065
  5. DETROL [Concomitant]
     Route: 065
  6. COZAAR [Concomitant]
     Indication: HYPERTENSION
     Route: 048
     Dates: start: 19970101, end: 20020901
  7. ASPIRIN [Concomitant]
     Indication: PROPHYLAXIS
     Route: 065
     Dates: start: 19980101
  8. XANAX [Concomitant]
     Indication: DEPRESSION
     Route: 065
     Dates: start: 19960101

REACTIONS (25)
  - ANXIETY [None]
  - ARTHRALGIA [None]
  - BACK PAIN [None]
  - CARDIOMYOPATHY [None]
  - COGNITIVE DISORDER [None]
  - DISTURBANCE IN ATTENTION [None]
  - DIZZINESS [None]
  - DYSLIPIDAEMIA [None]
  - ERECTILE DYSFUNCTION [None]
  - GENERALISED ANXIETY DISORDER [None]
  - HYPERTENSION [None]
  - HYPOTENSION [None]
  - INCONTINENCE [None]
  - INSOMNIA [None]
  - LIBIDO DISORDER [None]
  - MITRAL VALVE PROLAPSE [None]
  - MUSCULOSKELETAL STIFFNESS [None]
  - MYOCARDIAL INFARCTION [None]
  - MYOCARDITIS [None]
  - NOCTURIA [None]
  - POLLAKIURIA [None]
  - POLYURIA [None]
  - SLEEP APNOEA SYNDROME [None]
  - SLEEP DISORDER [None]
  - VENTRICULAR TACHYCARDIA [None]
